FAERS Safety Report 24782812 (Version 1)
Quarter: 2024Q4

REPORT INFORMATION
  Report Type: Report from Study
  Country: US (occurrence: US)
  Receive Date: 20241227
  Receipt Date: 20241227
  Transmission Date: 20250114
  Serious: Yes (Other)
  Sender: UCB
  Company Number: US-UCBSA-2024067513

PATIENT
  Age: 20 Year
  Sex: Male

DRUGS (1)
  1. FINTEPLA [Suspect]
     Active Substance: FENFLURAMINE
     Indication: Seizure
     Dosage: UNK

REACTIONS (1)
  - Pulmonary valve incompetence [Not Recovered/Not Resolved]

NARRATIVE: CASE EVENT DATE: 20241219
